FAERS Safety Report 9382118 (Version 1)
Quarter: 2013Q3

REPORT INFORMATION
  Report Type: Spontaneous
  Country: DE (occurrence: DE)
  Receive Date: 20130703
  Receipt Date: 20130703
  Transmission Date: 20140515
  Serious: Yes (Hospitalization)
  Sender: FDA-Public Use
  Company Number: DE-AMGEN-DEUSP2013046416

PATIENT
  Age: 59 Year
  Sex: Female

DRUGS (4)
  1. ENBREL [Suspect]
     Indication: RHEUMATOID ARTHRITIS
     Dosage: 50 MG, 1X/WEEK
     Route: 065
     Dates: start: 20130531
  2. MORPHINE [Concomitant]
     Dosage: UNK
  3. IBUPROFEN [Concomitant]
     Dosage: UNK
  4. CORTISONE [Concomitant]
     Dosage: 30 MG, UNK

REACTIONS (1)
  - Back pain [Not Recovered/Not Resolved]
